FAERS Safety Report 10265975 (Version 3)
Quarter: 2014Q4

REPORT INFORMATION
  Report Type: Spontaneous
  Country: US (occurrence: US)
  Receive Date: 20140627
  Receipt Date: 20141117
  Transmission Date: 20150528
  Serious: No
  Sender: FDA-Public Use
  Company Number: US-GILEAD-2014-0107007

PATIENT
  Age: 63 Year
  Sex: Female
  Weight: 77.98 kg

DRUGS (15)
  1. LETAIRIS [Suspect]
     Active Substance: AMBRISENTAN
     Indication: PULMONARY ARTERIAL HYPERTENSION
     Dosage: 5 MG, QD
     Route: 065
     Dates: start: 20140612
  2. REVATIO [Concomitant]
     Active Substance: SILDENAFIL CITRATE
  3. LORATADINE. [Concomitant]
     Active Substance: LORATADINE
  4. AZATHIOPRINE. [Concomitant]
     Active Substance: AZATHIOPRINE
  5. OMEPRAZOLE. [Concomitant]
     Active Substance: OMEPRAZOLE
  6. BIOTIN [Concomitant]
     Active Substance: BIOTIN
  7. RITUXIMAB [Concomitant]
     Active Substance: RITUXIMAB
  8. LETAIRIS [Suspect]
     Active Substance: AMBRISENTAN
     Indication: SYSTEMIC SCLEROSIS
  9. TRIAMTERENE W/TRICHLORMETHIAZIDE [Concomitant]
  10. SILDENAFIL. [Concomitant]
     Active Substance: SILDENAFIL
  11. LEVOTHYROXINE [Concomitant]
     Active Substance: LEVOTHYROXINE
  12. ATENOLOL. [Concomitant]
     Active Substance: ATENOLOL
  13. NAPROXEN. [Concomitant]
     Active Substance: NAPROXEN
  14. HYDROXYCHLOROQUINE [Concomitant]
     Active Substance: HYDROXYCHLOROQUINE
  15. CYCLOBENZAPRINE [Concomitant]
     Active Substance: CYCLOBENZAPRINE

REACTIONS (3)
  - Nasal congestion [Unknown]
  - Insomnia [Unknown]
  - Unevaluable event [Unknown]
